FAERS Safety Report 9617104 (Version 1)
Quarter: 2013Q4

REPORT INFORMATION
  Report Type: Spontaneous
  Country: US (occurrence: US)
  Receive Date: 20131011
  Receipt Date: 20131011
  Transmission Date: 20140711
  Serious: No
  Sender: FDA-Public Use
  Company Number: US-TARO-2013P1005530

PATIENT
  Age: 3 Year
  Sex: Male
  Weight: 20.41 kg

DRUGS (4)
  1. LORATADINE SYRUP (LORATADINE ORAL SOLUTION USP) 5MG/5ML [Suspect]
     Route: 048
     Dates: start: 201304
  2. MULTIVITAMINS [Concomitant]
  3. ALBUTEROL [Concomitant]
  4. DIPHENHYDRAMINE (ASSURED) [Concomitant]
     Dates: start: 2012

REACTIONS (1)
  - Drug ineffective [Unknown]
